FAERS Safety Report 9699125 (Version 3)
Quarter: 2014Q2

REPORT INFORMATION
  Report Type: Spontaneous
  Country: US (occurrence: US)
  Receive Date: 20131120
  Receipt Date: 20140613
  Transmission Date: 20141212
  Serious: Yes (Hospitalization, Disabling)
  Sender: FDA-Public Use
  Company Number: US-009507513-1311USA007231

PATIENT
  Age: 63 Year
  Sex: Female

DRUGS (5)
  1. NOROXIN [Suspect]
     Indication: PERITONITIS BACTERIAL
     Dosage: 400 MG, QD
     Route: 048
     Dates: start: 201201
  2. GABAPENTIN [Concomitant]
  3. BACLOFEN [Concomitant]
  4. HYDROCODONE [Concomitant]
  5. CIPRO (CIPROFLOXACIN HYDROCHLORIDE) [Concomitant]

REACTIONS (16)
  - Gait disturbance [Not Recovered/Not Resolved]
  - Disability [Not Recovered/Not Resolved]
  - Muscle spasms [Not Recovered/Not Resolved]
  - Joint swelling [Recovered/Resolved]
  - Pain [Not Recovered/Not Resolved]
  - Arthralgia [Not Recovered/Not Resolved]
  - Myalgia [Not Recovered/Not Resolved]
  - Skin discolouration [Unknown]
  - Hyperaesthesia [Not Recovered/Not Resolved]
  - Abasia [Not Recovered/Not Resolved]
  - Dysstasia [Not Recovered/Not Resolved]
  - Hypokinesia [Unknown]
  - Dysarthria [Unknown]
  - Tendonitis [Unknown]
  - Injury [Unknown]
  - Neuropathy peripheral [Not Recovered/Not Resolved]
